FAERS Safety Report 23689539 (Version 1)
Quarter: 2024Q1

REPORT INFORMATION
  Report Type: Spontaneous
  Country: US (occurrence: US)
  Receive Date: 20240331
  Receipt Date: 20240331
  Transmission Date: 20240410
  Serious: No
  Sender: FDA-Public Use
  Company Number: US-AMGEN-USASP2024059780

PATIENT
  Sex: Female
  Weight: 45 kg

DRUGS (1)
  1. NPLATE [Suspect]
     Active Substance: ROMIPLOSTIM
     Indication: Platelet count decreased
     Dosage: 1 MICROGRAM/KILOGRAM EVERY WEEK OR EVERY OTHER WEEK FOR ABOUT 10 DOSES
     Route: 065

REACTIONS (2)
  - Platelet count abnormal [Unknown]
  - Product preparation error [Unknown]

NARRATIVE: CASE EVENT DATE: 20240320
